FAERS Safety Report 5055536-X (Version None)
Quarter: 2006Q3

REPORT INFORMATION
  Report Type: 
  Country: None (occurrence: None)
  Receive Date: 20060714
  Receipt Date: 20060706
  Transmission Date: 20061208
  Serious: Yes (Other)
  Sender: FDA-Public Use
  Company Number: 2006085022

PATIENT

DRUGS (1)
  1. DETROL LA [Suspect]

REACTIONS (2)
  - ENTERECTOMY [None]
  - ILEOSTOMY [None]
